FAERS Safety Report 10777333 (Version 4)
Quarter: 2015Q2

REPORT INFORMATION
  Report Type: Spontaneous
  Country: US (occurrence: US)
  Receive Date: 20150209
  Receipt Date: 20150406
  Transmission Date: 20150821
  Serious: Yes (Congenital Anomaly, Other)
  Sender: FDA-Public Use
  Company Number: US-APOTEX-2015AP006352

PATIENT
  Age: 0 Day
  Sex: Female

DRUGS (2)
  1. PAXIL [Suspect]
     Active Substance: PAROXETINE HYDROCHLORIDE
     Indication: DEPRESSION
     Dosage: 20MG, 40MG OR 60MG
     Route: 064
     Dates: start: 1999, end: 20000517
  2. TYLENOL PM [Concomitant]
     Active Substance: ACETAMINOPHEN\DIPHENHYDRAMINE
     Indication: PRODUCT USED FOR UNKNOWN INDICATION
     Dosage: FULL BOTTLE OVER 8.5 HOURS
     Route: 065
     Dates: end: 2000

REACTIONS (6)
  - Bronchial hyperreactivity [Unknown]
  - Talipes [Recovered/Resolved]
  - Foetal exposure during pregnancy [Unknown]
  - Sleep apnoea syndrome [Unknown]
  - Gastroschisis [Unknown]
  - Otitis media chronic [Unknown]

NARRATIVE: CASE EVENT DATE: 20000517
